FAERS Safety Report 24404162 (Version 1)
Quarter: 2024Q4

REPORT INFORMATION
  Report Type: Spontaneous
  Country: US (occurrence: US)
  Receive Date: 20241007
  Receipt Date: 20241007
  Transmission Date: 20250115
  Serious: No
  Sender: TRIS PHARM
  Company Number: US-TRIS PHARMA, INC.-24US011661

PATIENT

DRUGS (1)
  1. DEXTROMETHORPHAN HYDROBROMIDE [Suspect]
     Active Substance: DEXTROMETHORPHAN HYDROBROMIDE
     Indication: Antitussive therapy
     Dosage: UNK
     Route: 048

REACTIONS (1)
  - Drug ineffective [Unknown]
